FAERS Safety Report 23557854 (Version 1)
Quarter: 2024Q1

REPORT INFORMATION
  Report Type: Spontaneous
  Country: IN (occurrence: None)
  Receive Date: 20240223
  Receipt Date: 20240223
  Transmission Date: 20240409
  Serious: Yes (Other)
  Sender: FDA-Public Use
  Company Number: IN-ROCHE-3511518

PATIENT
  Sex: Female

DRUGS (1)
  1. TECENTRIQ [Suspect]
     Active Substance: ATEZOLIZUMAB
     Indication: Oesophageal carcinoma
     Route: 041
     Dates: start: 20240129

REACTIONS (2)
  - Disease progression [Unknown]
  - Product use in unapproved indication [Unknown]
